FAERS Safety Report 25528695 (Version 1)
Quarter: 2025Q3

REPORT INFORMATION
  Report Type: Spontaneous
  Country: EU (occurrence: EU)
  Receive Date: 20250708
  Receipt Date: 20250708
  Transmission Date: 20251020
  Serious: Yes (Other)
  Sender: NOVARTIS
  Company Number: EU-002147023-NVSC2025DE103544

PATIENT
  Age: 71 Year
  Sex: Male

DRUGS (4)
  1. TRAMETINIB [Suspect]
     Active Substance: TRAMETINIB
     Indication: Metastases to lung
     Route: 065
  2. TRAMETINIB [Suspect]
     Active Substance: TRAMETINIB
     Indication: BRAF V600E mutation positive
  3. DABRAFENIB [Suspect]
     Active Substance: DABRAFENIB
     Indication: Metastases to lung
     Route: 065
  4. DABRAFENIB [Suspect]
     Active Substance: DABRAFENIB
     Indication: BRAF V600E mutation positive

REACTIONS (4)
  - Pneumonitis [Unknown]
  - Malignant neoplasm oligoprogression [Unknown]
  - Rash [Unknown]
  - Keratoacanthoma [Unknown]
